FAERS Safety Report 5843184-0 (Version None)
Quarter: 2008Q3

REPORT INFORMATION
  Report Type: 
  Country: None (occurrence: None)
  Receive Date: 20080813
  Receipt Date: 20080804
  Transmission Date: 20090109
  Serious: Yes (Hospitalization)
  Sender: FDA-Public Use
  Company Number: PHHY2008IT17071

PATIENT
  Age: 75 Year
  Sex: Female

DRUGS (6)
  1. LESCOL [Suspect]
     Indication: HYPERLIPIDAEMIA
     Dosage: UNK
     Route: 048
     Dates: start: 20080701
  2. SIMVASTATIN [Concomitant]
  3. WARFARIN SODIUM [Concomitant]
  4. RAMIPRIL [Concomitant]
  5. ASPIRIN [Concomitant]
  6. DIAMICRON [Concomitant]

REACTIONS (3)
  - BACK PAIN [None]
  - MYOGLOBIN BLOOD INCREASED [None]
  - RENAL FAILURE ACUTE [None]
